FAERS Safety Report 8265104-4 (Version None)
Quarter: 2012Q2

REPORT INFORMATION
  Report Type: 
  Country: None (occurrence: None)
  Receive Date: 20120406
  Receipt Date: 20120402
  Transmission Date: 20120825
  Serious: No
  Sender: FDA-Public Use
  Company Number: US-PFIZER INC-2012083392

PATIENT
  Sex: Male
  Weight: 80.272 kg

DRUGS (9)
  1. ALAVERT [Suspect]
     Indication: NASAL CONGESTION
  2. ALAVERT [Suspect]
     Indication: RHINORRHOEA
  3. ALAVERT [Suspect]
     Indication: EYE PRURITUS
     Dosage: UNK, AS NEEDED
     Route: 048
     Dates: start: 20120301, end: 20120301
  4. SUDAFED 12 HOUR [Suspect]
     Indication: EYE PRURITUS
     Dosage: 2 OR 3 TABLETS, AS NEEDED
     Route: 048
     Dates: start: 20120301
  5. SUDAFED 12 HOUR [Suspect]
     Indication: SNEEZING
  6. ALAVERT [Suspect]
     Indication: SNEEZING
  7. SUDAFED 12 HOUR [Suspect]
     Indication: RHINORRHOEA
  8. SUDAFED 12 HOUR [Suspect]
     Indication: NASAL CONGESTION
  9. LIPITOR [Concomitant]
     Indication: BLOOD CHOLESTEROL INCREASED
     Dosage: 40 MG DAILY
     Route: 048

REACTIONS (3)
  - DRUG INEFFECTIVE [None]
  - EXPIRED DRUG ADMINISTERED [None]
  - SLUGGISHNESS [None]
